FAERS Safety Report 17251593 (Version 1)
Quarter: 2020Q1

REPORT INFORMATION
  Report Type: Spontaneous
  Country: US (occurrence: US)
  Receive Date: 20200108
  Receipt Date: 20200108
  Transmission Date: 20200409
  Serious: Yes (Other)
  Sender: FDA-Public Use
  Company Number: None

PATIENT
  Age: 67 Year
  Sex: Female
  Weight: 72.45 kg

DRUGS (7)
  1. PRAVASTATIN. [Concomitant]
     Active Substance: PRAVASTATIN
  2. CALCIUM [Concomitant]
     Active Substance: CALCIUM
  3. XGEVA [Concomitant]
     Active Substance: DENOSUMAB
  4. VITAMIN B12 [Concomitant]
     Active Substance: CYANOCOBALAMIN
  5. TAMOXIFEN [Concomitant]
     Active Substance: TAMOXIFEN
  6. AFINITOR [Suspect]
     Active Substance: EVEROLIMUS
     Indication: BREAST CANCER
     Route: 048
     Dates: start: 20191130
  7. VITAMIN D [Concomitant]
     Active Substance: VITAMIN D NOS

REACTIONS (1)
  - Radiation pneumonitis [None]

NARRATIVE: CASE EVENT DATE: 20200102
